FAERS Safety Report 22287736 (Version 1)
Quarter: 2023Q2

REPORT INFORMATION
  Report Type: Spontaneous
  Country: JP (occurrence: JP)
  Receive Date: 20230505
  Receipt Date: 20230505
  Transmission Date: 20230721
  Serious: Yes (Other)
  Sender: FDA-Public Use
  Company Number: JP-MYLANLABS-2023M1046805

PATIENT
  Age: 2 Year
  Sex: Female

DRUGS (4)
  1. TACROLIMUS [Suspect]
     Active Substance: TACROLIMUS
     Indication: Prophylaxis against graft versus host disease
     Dosage: 0.02 MILLIGRAM/KILOGRAM, QD
     Route: 065
  2. METHOTREXATE [Suspect]
     Active Substance: METHOTREXATE
     Indication: Prophylaxis against graft versus host disease
     Dosage: UNK
     Route: 065
  3. URSODIOL [Suspect]
     Active Substance: URSODIOL
     Indication: Prophylaxis
     Dosage: UNK
     Route: 065
  4. THROMBOMODULIN ALFA [Suspect]
     Active Substance: THROMBOMODULIN ALFA
     Indication: Prophylaxis
     Dosage: QD, DOSE: 380 U/KG FOR 7 DAYS FROM DAYS 7 TO 13
     Route: 065

REACTIONS (1)
  - Drug ineffective [Unknown]
